FAERS Safety Report 7759517-4 (Version None)
Quarter: 2011Q3

REPORT INFORMATION
  Report Type: 
  Country: None (occurrence: None)
  Receive Date: 20110919
  Receipt Date: 20110919
  Transmission Date: 20111222
  Serious: No
  Sender: FDA-Public Use
  Company Number: None

PATIENT
  Age: 85 Year
  Sex: Female
  Weight: 61.234 kg

DRUGS (2)
  1. LEVOFLOXACIN [Suspect]
     Indication: RESPIRATORY TRACT CONGESTION
     Dosage: 1
     Route: 048
     Dates: start: 20110731, end: 20110809
  2. LEVOFLOXACIN [Suspect]
     Indication: COUGH
     Dosage: 1
     Route: 048
     Dates: start: 20110731, end: 20110809

REACTIONS (5)
  - WEIGHT BEARING DIFFICULTY [None]
  - OEDEMA PERIPHERAL [None]
  - JOINT SWELLING [None]
  - ARTHRALGIA [None]
  - PAIN IN EXTREMITY [None]
